FAERS Safety Report 17116123 (Version 1)
Quarter: 2019Q4

REPORT INFORMATION
  Report Type: Spontaneous
  Country: US (occurrence: US)
  Receive Date: 20191205
  Receipt Date: 20191205
  Transmission Date: 20200122
  Serious: Yes (Hospitalization, Other)
  Sender: FDA-Public Use
  Company Number: US-HIKMA PHARMACEUTICALS USA INC.-US-H14001-19-06021

PATIENT
  Age: 39 Year
  Sex: Female

DRUGS (8)
  1. PAZOPANIB [Concomitant]
     Active Substance: PAZOPANIB
     Indication: SYNOVIAL SARCOMA METASTATIC
     Route: 065
  2. BACTRIM [Concomitant]
     Active Substance: SULFAMETHOXAZOLE\TRIMETHOPRIM
     Indication: PRODUCT USED FOR UNKNOWN INDICATION
     Route: 065
  3. ERTAPENEM. [Concomitant]
     Active Substance: ERTAPENEM SODIUM
     Indication: BACTERAEMIA
     Route: 042
  4. FLUDARABINE [Suspect]
     Active Substance: FLUDARABINE PHOSPHATE
     Indication: SYNOVIAL SARCOMA METASTATIC
     Route: 065
  5. AUGMENTIN [Concomitant]
     Active Substance: AMOXICILLIN\CLAVULANATE POTASSIUM
     Indication: BACTERAEMIA
     Route: 048
  6. CYCLOPHOSPHAMIDE. [Suspect]
     Active Substance: CYCLOPHOSPHAMIDE
     Indication: SYNOVIAL SARCOMA METASTATIC
     Route: 065
  7. ERTAPENEM. [Concomitant]
     Active Substance: ERTAPENEM SODIUM
     Indication: ESCHERICHIA INFECTION
  8. AUGMENTIN [Concomitant]
     Active Substance: AMOXICILLIN\CLAVULANATE POTASSIUM
     Indication: ESCHERICHIA INFECTION

REACTIONS (5)
  - Vomiting [Unknown]
  - Nausea [Unknown]
  - Pancytopenia [Recovered/Resolved]
  - Guillain-Barre syndrome [Recovered/Resolved]
  - Cytokine release syndrome [Recovered/Resolved]
